FAERS Safety Report 5457805-8 (Version None)
Quarter: 2007Q3

REPORT INFORMATION
  Report Type: 
  Country: None (occurrence: None)
  Receive Date: 20070917
  Receipt Date: 20070911
  Transmission Date: 20080115
  Serious: Yes (Disabling, Other)
  Sender: FDA-Public Use
  Company Number: 163-21880-07080945

PATIENT
  Age: 77 Year
  Sex: Male

DRUGS (2)
  1. REVLIMID [Suspect]
     Indication: MULTIPLE MYELOMA
     Dosage: 25 MG, 1 IN 1 D, ORAL
     Route: 048
     Dates: start: 20070807, end: 20070801
  2. DEXAMETHASONE TAB [Concomitant]

REACTIONS (5)
  - ABNORMAL BEHAVIOUR [None]
  - DISORIENTATION [None]
  - HALLUCINATION [None]
  - SWELLING [None]
  - URINARY TRACT INFECTION [None]
